FAERS Safety Report 5280346-8 (Version None)
Quarter: 2007Q1

REPORT INFORMATION
  Report Type: 
  Country: None (occurrence: None)
  Receive Date: 20070329
  Receipt Date: 20070320
  Transmission Date: 20070707
  Serious: Yes (Other)
  Sender: FDA-Public Use
  Company Number: JP-BRISTOL-MYERS SQUIBB COMPANY-13722517

PATIENT
  Sex: Male

DRUGS (2)
  1. VEPESID [Suspect]
     Indication: PROSTATE CANCER
     Route: 048
  2. ESTRAMUSTINE [Concomitant]
     Indication: PROSTATE CANCER
     Route: 048

REACTIONS (1)
  - DEEP VEIN THROMBOSIS [None]
